FAERS Safety Report 25128088 (Version 2)
Quarter: 2025Q2

REPORT INFORMATION
  Report Type: Spontaneous
  Country: US (occurrence: US)
  Receive Date: 20250327
  Receipt Date: 20250426
  Transmission Date: 20250716
  Serious: No
  Sender: AMGEN
  Company Number: US-PFIZER INC-202500063324

PATIENT
  Age: 75 Year
  Sex: Female

DRUGS (1)
  1. ENBREL [Suspect]
     Active Substance: ETANERCEPT
     Indication: Rheumatoid arthritis
     Route: 065

REACTIONS (1)
  - Condition aggravated [Recovering/Resolving]
